FAERS Safety Report 20638443 (Version 1)
Quarter: 2022Q1

REPORT INFORMATION
  Report Type: Spontaneous
  Country: EC (occurrence: EC)
  Receive Date: 20220325
  Receipt Date: 20220325
  Transmission Date: 20220423
  Serious: Yes (Death, Hospitalization)
  Sender: FDA-Public Use
  Company Number: EC-Ipsen Biopharmaceuticals, Inc.-2022-08339

PATIENT
  Age: 74 Year
  Sex: Male

DRUGS (2)
  1. DYSPORT [Suspect]
     Active Substance: ABOBOTULINUMTOXINA
     Indication: Quadriplegia
     Dosage: 1500 IU
     Route: 030
     Dates: start: 20210917, end: 20210917
  2. DYSPORT [Suspect]
     Active Substance: ABOBOTULINUMTOXINA
     Indication: Off label use

REACTIONS (5)
  - Myocardial infarction [Fatal]
  - General physical health deterioration [Unknown]
  - Decreased appetite [Unknown]
  - Selective mutism [Unknown]
  - Off label use [Unknown]

NARRATIVE: CASE EVENT DATE: 20210101
